FAERS Safety Report 9730164 (Version 2)
Quarter: 2013Q4

REPORT INFORMATION
  Report Type: Spontaneous
  Country: DE (occurrence: DE)
  Receive Date: 20131204
  Receipt Date: 20131204
  Transmission Date: 20140711
  Serious: Yes (Hospitalization)
  Sender: FDA-Public Use
  Company Number: DE-ELI_LILLY_AND_COMPANY-DE201310004286

PATIENT
  Age: 14 Month
  Sex: Male
  Weight: 10.7 kg

DRUGS (2)
  1. CYMBALTA [Suspect]
     Dosage: 60 MG, SINGLE
     Route: 065
  2. LYRICA [Suspect]
     Dosage: 50 MG, SINGLE
     Route: 065

REACTIONS (1)
  - Accidental exposure to product by child [Recovered/Resolved]
